FAERS Safety Report 15157145 (Version 3)
Quarter: 2022Q2

REPORT INFORMATION
  Report Type: Report from Study
  Country: CA (occurrence: CA)
  Receive Date: 20180718
  Receipt Date: 20220412
  Transmission Date: 20220721
  Serious: Yes (Death)
  Sender: FDA-Public Use
  Company Number: CA-002147023-PHHY2018CA043454

PATIENT

DRUGS (1)
  1. RUXOLITINIB [Suspect]
     Active Substance: RUXOLITINIB
     Indication: Myelofibrosis
     Dosage: 20 MG, QD
     Route: 048
     Dates: start: 20170614

REACTIONS (7)
  - Renal cyst [Unknown]
  - Eating disorder [Unknown]
  - Death [Fatal]
  - Product dose omission issue [Unknown]
  - Product availability issue [Unknown]
  - Splenomegaly [Unknown]
  - Hepatic steatosis [Unknown]
